FAERS Safety Report 11114264 (Version 1)
Quarter: 2015Q2

REPORT INFORMATION
  Report Type: Spontaneous
  Country: US (occurrence: US)
  Receive Date: 20150514
  Receipt Date: 20150514
  Transmission Date: 20150821
  Serious: No
  Sender: FDA-Public Use
  Company Number: US-GLAXOSMITHKLINE-US2015031720

PATIENT
  Sex: Female

DRUGS (3)
  1. DECADRON [Concomitant]
     Active Substance: DEXAMETHASONE
  2. FLONASE [Suspect]
     Active Substance: FLUTICASONE PROPIONATE
     Indication: HYPERSENSITIVITY
     Dosage: UNK
     Route: 045
     Dates: start: 20150220, end: 20150308
  3. FLONASE [Suspect]
     Active Substance: FLUTICASONE PROPIONATE
     Dosage: 1 UNK, UNK
     Route: 045
     Dates: start: 20150308, end: 20150310

REACTIONS (4)
  - Eye disorder [Not Recovered/Not Resolved]
  - Constipation [Not Recovered/Not Resolved]
  - Dehydration [Not Recovered/Not Resolved]
  - Drug administration error [Recovered/Resolved]

NARRATIVE: CASE EVENT DATE: 20150220
